FAERS Safety Report 4569566-5 (Version None)
Quarter: 2005Q1

REPORT INFORMATION
  Report Type: 
  Country: None (occurrence: None)
  Receive Date: 20050201
  Receipt Date: 20050118
  Transmission Date: 20050727
  Serious: Yes (Other)
  Sender: FDA-Public Use
  Company Number: 2005-01-1071

PATIENT
  Sex: Male

DRUGS (1)
  1. CLARITIN-D [Suspect]
     Dosage: ORAL
     Route: 048

REACTIONS (1)
  - STEVENS-JOHNSON SYNDROME [None]
